FAERS Safety Report 17858909 (Version 1)
Quarter: 2020Q2

REPORT INFORMATION
  Report Type: Spontaneous
  Country: CA (occurrence: CA)
  Receive Date: 20200604
  Receipt Date: 20200604
  Transmission Date: 20200714
  Serious: Yes (Hospitalization)
  Sender: FDA-Public Use
  Company Number: CA-SAMSUNG BIOEPIS-SB-2020-18357

PATIENT
  Age: 54 Year
  Sex: Male

DRUGS (1)
  1. ETANERCEPT [Suspect]
     Active Substance: ETANERCEPT
     Indication: ANKYLOSING SPONDYLITIS
     Route: 058

REACTIONS (20)
  - Arthralgia [Unknown]
  - Dysstasia [Unknown]
  - Pain [Unknown]
  - Drug ineffective [Unknown]
  - Wrong technique in device usage process [Unknown]
  - C-reactive protein increased [Unknown]
  - Concomitant disease aggravated [Unknown]
  - Dyspnoea [Unknown]
  - Joint swelling [Unknown]
  - Sputum discoloured [Unknown]
  - Dyspnoea exertional [Unknown]
  - Fatigue [Unknown]
  - Sensitivity to weather change [Unknown]
  - Discomfort [Unknown]
  - Back pain [Unknown]
  - Nasopharyngitis [Unknown]
  - Neck pain [Unknown]
  - Influenza [Unknown]
  - Musculoskeletal stiffness [Unknown]
  - Injection site bruising [Unknown]
